FAERS Safety Report 15017736 (Version 1)
Quarter: 2018Q2

REPORT INFORMATION
  Report Type: Report from Study
  Country: US (occurrence: US)
  Receive Date: 20180615
  Receipt Date: 20180615
  Transmission Date: 20180711
  Serious: Yes (Hospitalization)
  Sender: FDA-Public Use
  Company Number: US-PFIZER INC-2018229570

PATIENT
  Age: 48 Year
  Sex: Male

DRUGS (13)
  1. METHOTREXATE SODIUM. [Suspect]
     Active Substance: METHOTREXATE SODIUM
     Dosage: REGIMEN B: 50 MG/M2,  OVER 2HRS ON DAY 1 THEN
     Route: 042
  2. CYCLOPHOSPHAMIDE. [Suspect]
     Active Substance: CYCLOPHOSPHAMIDE
     Dosage: REGIMEN A: 150 MG/M2, OVER 3 HOURS TWICE A DAY ON DAYS 1-3
     Route: 042
  3. ARA-C [Suspect]
     Active Substance: CYTARABINE
     Dosage: 0.5 G/M2 OVER 3 HOURS TWICE A DAY X 4 DOSES ON DAYS 2 AND 3
     Route: 042
  4. INOTUZUMAB OZOGAMICIN [Suspect]
     Active Substance: INOTUZUMAB OZOGAMICIN
     Indication: ACUTE LYMPHOCYTIC LEUKAEMIA
     Dosage: REGIMEN A: 0.3 MG/M2, OVER 1 HOUR ON DAY 3
     Route: 042
     Dates: start: 20180221
  5. DEXAMETHASONE. [Suspect]
     Active Substance: DEXAMETHASONE
     Dosage: REGIMEN A: 20 MG, DAILY FOR 4 DAYS ON DAYS 1-4 AND DAYS 11-14
     Route: 042
  6. PEGFILGRASTIM [Suspect]
     Active Substance: PEGFILGRASTIM
     Dosage: REGIMEN B: 6 MG SUBQ(OR FILGRASTIM 5-10 MCG/KG DAILY) ON DAY 4 UNTIL RECOVERY OF GRANULOCYTE COUNT
     Route: 058
  7. VINCRISTINE SULFATE. [Suspect]
     Active Substance: VINCRISTINE SULFATE
     Dosage: REGIMEN A: 2 MG, DAY 1 AND DAY 8
     Route: 042
  8. METHOTREXATE SODIUM. [Suspect]
     Active Substance: METHOTREXATE SODIUM
     Dosage: REGIMEN B: 200 MG/M2, CONTINUOUS INFUSION OVER 22 HOURS ON DAY 1
  9. PEGFILGRASTIM [Suspect]
     Active Substance: PEGFILGRASTIM
     Dosage: REGIMEN A: 6 MG SUBQ, (OR FILGRASTIM 5-10 MCG/KG DAILY) ON DAY 4 UNTIL RECOVERY OF GRANULOCYTE COUNT
     Route: 058
  10. INOTUZUMAB OZOGAMICIN [Suspect]
     Active Substance: INOTUZUMAB OZOGAMICIN
     Dosage: REGIMEN B: 0.3 MG/M2, ON DAY 2 OR 3 (CYCLES 2 AND 4 ONLY)
     Route: 042
  11. RITUXIMAB. [Suspect]
     Active Substance: RITUXIMAB
     Dosage: REGIMEN B: 375 MG/M2, ON DAY 2 AND 8 OF CYCLES 2 AND 4
     Route: 042
  12. MESNA. [Suspect]
     Active Substance: MESNA
     Dosage: REGIMEN A: 300 MG/M2, DAILY OVER 24 HOURS FOR 3 DAYS ON DAYS 1-3
     Route: 042
  13. RITUXIMAB. [Suspect]
     Active Substance: RITUXIMAB
     Dosage: REGIMEN A: 375 MG/M2, ON DAY 2 AND DAY 8 (CYCLES 1 AND 3 ONLY)
     Route: 042

REACTIONS (1)
  - Mental status changes [Recovered/Resolved]

NARRATIVE: CASE EVENT DATE: 20180514
